FAERS Safety Report 5583890-9 (Version None)
Quarter: 2008Q1

REPORT INFORMATION
  Report Type: 
  Country: None (occurrence: None)
  Receive Date: 20080108
  Receipt Date: 20071228
  Transmission Date: 20080703
  Serious: Yes (Hospitalization, Other)
  Sender: FDA-Public Use
  Company Number: CH-NOVOPROD-270733

PATIENT
  Age: 85 Year
  Sex: Male

DRUGS (12)
  1. NOVONORM [Suspect]
     Dosage: 1 MG, QD
     Route: 048
  2. LEVEMIR [Suspect]
     Dosage: 34 IU, QD
  3. KLACID                             /00984601/ [Concomitant]
     Dosage: 250 MG, QD
     Route: 048
     Dates: start: 20071204, end: 20071216
  4. RENITEN MITE [Concomitant]
     Dosage: 10 MG, QD
     Route: 048
  5. DILATREND [Concomitant]
     Dosage: 12.5 MG, QD
     Route: 048
  6. NITRODERM [Concomitant]
     Dosage: 50 MG, QD
     Route: 062
  7. LASIX [Concomitant]
     Dosage: 40 MG, QD
  8. ALDACTONE [Concomitant]
     Dosage: 1 DF, QD
     Route: 048
  9. SINTROM [Concomitant]
     Route: 048
  10. DIGOXIN STREULI [Concomitant]
     Dosage: .125 MG, QD
     Route: 048
  11. NEXIUM [Concomitant]
     Dosage: 44.5 MG, QD
     Route: 048
  12. CEFURIM ECO [Concomitant]
     Dosage: 1000 MG, QD
     Route: 048

REACTIONS (2)
  - CONFUSIONAL STATE [None]
  - HYPOGLYCAEMIA [None]
